FAERS Safety Report 8477167-1 (Version None)
Quarter: 2012Q2

REPORT INFORMATION
  Report Type: 
  Country: None (occurrence: None)
  Receive Date: 20120625
  Receipt Date: 20120625
  Transmission Date: 20120825
  Serious: Yes (Other)
  Sender: FDA-Public Use
  Company Number: None

PATIENT
  Sex: Female

DRUGS (1)
  1. COPAXONE [Suspect]
     Indication: MULTIPLE SCLEROSIS
     Dosage: 20MG DAILY SQ
     Route: 058
     Dates: start: 20120229, end: 20120628

REACTIONS (4)
  - PALPITATIONS [None]
  - NAUSEA [None]
  - ANXIETY [None]
  - PHARYNGEAL HYPOAESTHESIA [None]
